FAERS Safety Report 12631784 (Version 2)
Quarter: 2016Q3

REPORT INFORMATION
  Report Type: Spontaneous
  Country: US (occurrence: US)
  Receive Date: 20160808
  Receipt Date: 20160808
  Transmission Date: 20161109
  Serious: No
  Sender: FDA-Public Use
  Company Number: US-BEH-2016061005

PATIENT
  Sex: Female
  Weight: 117 kg

DRUGS (20)
  1. APPLE CIDER [Concomitant]
  2. VITAMIN D [Concomitant]
     Active Substance: CHOLECALCIFEROL
  3. HIZENTRA [Suspect]
     Active Substance: HUMAN IMMUNOGLOBULIN G
     Indication: HYPOGAMMAGLOBULINAEMIA
     Route: 058
  4. PANTOPRAZOLE [Concomitant]
     Active Substance: PANTOPRAZOLE SODIUM
  5. COMPLETE MULTIVITAMIN [Concomitant]
     Active Substance: VITAMINS
  6. ADVIL [Concomitant]
     Active Substance: IBUPROFEN
  7. HYOSCYAMINE SULFATE. [Concomitant]
     Active Substance: HYOSCYAMINE SULFATE
  8. HIZENTRA [Suspect]
     Active Substance: HUMAN IMMUNOGLOBULIN G
     Route: 058
  9. DIPHENHYDRAMINE. [Concomitant]
     Active Substance: DIPHENHYDRAMINE
  10. WELLBUTRIN [Concomitant]
     Active Substance: BUPROPION HYDROCHLORIDE
  11. MUCINEX [Concomitant]
     Active Substance: GUAIFENESIN
  12. HIZENTRA [Suspect]
     Active Substance: HUMAN IMMUNOGLOBULIN G
     Indication: RHINITIS ALLERGIC
     Route: 058
  13. ONDANSETRON [Concomitant]
     Active Substance: ONDANSETRON
  14. ACETAMINOPHEN. [Concomitant]
     Active Substance: ACETAMINOPHEN
  15. LIDOCAINE. [Concomitant]
     Active Substance: LIDOCAINE
  16. EPIPEN [Concomitant]
     Active Substance: EPINEPHRINE
  17. HIZENTRA [Suspect]
     Active Substance: HUMAN IMMUNOGLOBULIN G
     Route: 058
  18. GLUCOSAMINE [Concomitant]
     Active Substance: GLUCOSAMINE
  19. COLACE [Concomitant]
     Active Substance: DOCUSATE SODIUM
  20. OMEPRAZOLE. [Concomitant]
     Active Substance: OMEPRAZOLE

REACTIONS (1)
  - Bronchitis [Unknown]
